FAERS Safety Report 6073376-X (Version None)
Quarter: 2009Q1

REPORT INFORMATION
  Report Type: 
  Country: None (occurrence: None)
  Receive Date: 20090205
  Receipt Date: 20090128
  Transmission Date: 20090719
  Serious: Yes (Death, Hospitalization)
  Sender: FDA-Public Use
  Company Number: PAR_02823_2009

PATIENT
  Age: 3 Year
  Sex: Male

DRUGS (3)
  1. METHYLPREDNISOLONE [Suspect]
     Indication: HEART TRANSPLANT REJECTION
     Dosage: 120 MG
  2. TACROLIMUS [Concomitant]
  3. MYCOPHENOLATE MOFETIL [Concomitant]

REACTIONS (5)
  - BRADYCARDIA [None]
  - CARDIAC ARREST [None]
  - EJECTION FRACTION DECREASED [None]
  - HYPOXIC ENCEPHALOPATHY [None]
  - REFUSAL OF TREATMENT BY PATIENT [None]
